FAERS Safety Report 6830552-3 (Version None)
Quarter: 2010Q3

REPORT INFORMATION
  Report Type: 
  Country: None (occurrence: None)
  Receive Date: 20100709
  Receipt Date: 20100709
  Transmission Date: 20110219
  Serious: No
  Sender: FDA-Public Use
  Company Number: None

PATIENT
  Age: 51 Year
  Sex: Female
  Weight: 68.0396 kg

DRUGS (1)
  1. BACLOFEN [Suspect]
     Indication: HOT FLUSH
     Dosage: 10 MG ONCE A DAY L.C TOOK FOR 1-WEEK APPROX?
     Dates: start: 20100401

REACTIONS (6)
  - ARTHRALGIA [None]
  - DYSPNOEA [None]
  - JOINT SWELLING [None]
  - MYALGIA [None]
  - PAIN IN EXTREMITY [None]
  - PELVIC DISCOMFORT [None]
